FAERS Safety Report 6542600-9 (Version None)
Quarter: 2010Q1

REPORT INFORMATION
  Report Type: 
  Country: None (occurrence: None)
  Receive Date: 20100119
  Receipt Date: 20100113
  Transmission Date: 20100710
  Serious: Yes (Death)
  Sender: FDA-Public Use
  Company Number: DE-GENENTECH-295464

PATIENT
  Age: 79 Year
  Sex: Male
  Weight: 69 kg

DRUGS (3)
  1. MABTHERA [Suspect]
     Indication: CHRONIC LYMPHOCYTIC LEUKAEMIA
     Dosage: UNK
     Route: 065
     Dates: start: 20090930
  2. BENDAMUSTINE [Concomitant]
     Indication: DRUG USE FOR UNKNOWN INDICATION
     Dosage: UNK
     Dates: start: 20091028
  3. PREDNISOLONE [Concomitant]
     Indication: DRUG USE FOR UNKNOWN INDICATION
     Dosage: UNK

REACTIONS (4)
  - DEEP VEIN THROMBOSIS [None]
  - MULTI-ORGAN FAILURE [None]
  - PNEUMONIA PRIMARY ATYPICAL [None]
  - PULMONARY EMBOLISM [None]
